FAERS Safety Report 8467413-2 (Version None)
Quarter: 2012Q2

REPORT INFORMATION
  Report Type: 
  Country: None (occurrence: None)
  Receive Date: 20120626
  Receipt Date: 20120618
  Transmission Date: 20120825
  Serious: Yes (Hospitalization)
  Sender: FDA-Public Use
  Company Number: JP-EISAI INC-E3810-05442-SPO-JP

PATIENT
  Age: 60 Year
  Sex: Male

DRUGS (8)
  1. LANSOPRAZOLE [Concomitant]
     Indication: DUODENAL ULCER
     Route: 048
     Dates: start: 20120402, end: 20120403
  2. THROMBIN [Concomitant]
     Indication: UPPER GASTROINTESTINAL HAEMORRHAGE
     Route: 048
     Dates: start: 20120404, end: 20120407
  3. OMEPRAZOLE [Concomitant]
     Indication: DUODENAL ULCER
     Route: 042
     Dates: start: 20120404, end: 20120409
  4. SELBEX [Concomitant]
     Indication: DUODENAL ULCER
     Dates: start: 20120409, end: 20120411
  5. RABEPRAZOLE SODIUM [Suspect]
     Indication: DUODENAL ULCER
     Route: 048
     Dates: start: 20120410, end: 20120411
  6. CANDESARTAN CILEXETIL [Concomitant]
     Indication: HYPERTENSION
     Route: 048
     Dates: end: 20120404
  7. NORVASC [Concomitant]
     Indication: HYPERTENSION
     Route: 048
     Dates: end: 20120404
  8. MAGNESIUM HYDROXIDE TAB [Concomitant]
     Indication: DUODENAL ULCER
     Route: 048
     Dates: start: 20120404, end: 20120407

REACTIONS (3)
  - FEBRILE NEUTROPENIA [None]
  - HEPATIC FAILURE [None]
  - RENAL FAILURE [None]
